FAERS Safety Report 10648172 (Version 1)
Quarter: 2014Q4

REPORT INFORMATION
  Report Type: Spontaneous
  Country: US (occurrence: None)
  Receive Date: 20141211
  Receipt Date: 20141211
  Transmission Date: 20150529
  Serious: Yes (Other)
  Sender: FDA-Public Use
  Company Number: None

PATIENT
  Age: 60 Year
  Sex: Female

DRUGS (1)
  1. ALENDRONATE SODIUM. [Suspect]
     Active Substance: ALENDRONATE SODIUM
     Indication: OSTEOPOROSIS
     Dosage: ONE TABLET
     Route: 048
     Dates: start: 20140804

REACTIONS (3)
  - Oral discomfort [None]
  - Wrong technique in drug usage process [None]
  - Stomatitis [None]

NARRATIVE: CASE EVENT DATE: 20140804
